FAERS Safety Report 4802972-X (Version None)
Quarter: 2005Q4

REPORT INFORMATION
  Report Type: 
  Country: None (occurrence: None)
  Receive Date: 20051013
  Receipt Date: 20050925
  Transmission Date: 20060501
  Serious: Yes (Death, Hospitalization)
  Sender: FDA-Public Use
  Company Number: EWC050946055

PATIENT
  Age: 14 Year
  Sex: Male
  Weight: 40 kg

DRUGS (5)
  1. XIGRIS (DROTRECOGIN ALFA (ACTIVATED)) [Suspect]
     Indication: SEPSIS
     Dosage: 24 MG/KG/HR
     Dates: start: 20050921, end: 20050924
  2. CEFOPERAZONE SODIUM [Concomitant]
  3. CLINDAMYCIN [Concomitant]
  4. MEROPENEM [Concomitant]
  5. HEPARIN [Concomitant]

REACTIONS (2)
  - HAEMORRHAGE INTRACRANIAL [None]
  - MYDRIASIS [None]
